FAERS Safety Report 4621271-2 (Version None)
Quarter: 2005Q1

REPORT INFORMATION
  Report Type: 
  Country: None (occurrence: None)
  Receive Date: 20050329
  Receipt Date: 20050315
  Transmission Date: 20050727
  Serious: Yes (Other)
  Sender: FDA-Public Use
  Company Number: US-JNJFOC-20050304215

PATIENT
  Sex: Male
  Weight: 38.56 kg

DRUGS (4)
  1. TYLENOL [Suspect]
     Route: 049
  2. TYLENOL [Suspect]
     Indication: PAIN
     Route: 049
  3. TYLENOL (CAPLET) [Suspect]
     Route: 049
  4. TYLENOL (CAPLET) [Suspect]
     Indication: DRUG USE FOR UNKNOWN INDICATION
     Dosage: UNKNOWN
     Route: 049

REACTIONS (1)
  - HYPERSENSITIVITY [None]
